FAERS Safety Report 5825535-6 (Version None)
Quarter: 2008Q3

REPORT INFORMATION
  Report Type: 
  Country: None (occurrence: None)
  Receive Date: 20080725
  Receipt Date: 20080725
  Transmission Date: 20090109
  Serious: Yes (Other)
  Sender: FDA-Public Use
  Company Number: None

PATIENT
  Age: 69 Year
  Sex: Female
  Weight: 83.0083 kg

DRUGS (1)
  1. LANTUS [Suspect]
     Indication: TYPE 2 DIABETES MELLITUS
     Dosage: 26 UNITS EVERY DAY SQ
     Route: 058
     Dates: start: 20080710, end: 20080724

REACTIONS (3)
  - EAR DISCOMFORT [None]
  - INJECTION SITE URTICARIA [None]
  - NASAL CONGESTION [None]
